FAERS Safety Report 20638223 (Version 1)
Quarter: 2022Q1

REPORT INFORMATION
  Report Type: Spontaneous
  Country: CN (occurrence: CN)
  Receive Date: 20220325
  Receipt Date: 20220325
  Transmission Date: 20220423
  Serious: Yes (Other)
  Sender: FDA-Public Use
  Company Number: CN-PFIZER INC-202200418029

PATIENT
  Age: 17 Year

DRUGS (2)
  1. XELJANZ [Suspect]
     Active Substance: TOFACITINIB CITRATE
     Dosage: 2 DF, DAILY
     Route: 048
     Dates: start: 202102
  2. IGURATIMOD [Suspect]
     Active Substance: IGURATIMOD
     Dosage: 25 MG, 1X/DAY
     Route: 048
     Dates: start: 202102

REACTIONS (1)
  - Nephrolithiasis [Unknown]
